FAERS Safety Report 5975397-1 (Version None)
Quarter: 2008Q4

REPORT INFORMATION
  Report Type: 
  Country: None (occurrence: None)
  Receive Date: 20081128
  Receipt Date: 20081119
  Transmission Date: 20090506
  Serious: Yes (Hospitalization)
  Sender: FDA-Public Use
  Company Number: 2008SP023829

PATIENT
  Age: 5 Month
  Sex: Female

DRUGS (1)
  1. BETAMETHASONE [Suspect]
     Indication: INTRACRANIAL HAEMANGIOMA
     Dosage: 2 MG/KG; QD; PO
     Route: 048

REACTIONS (2)
  - CUSHING'S SYNDROME [None]
  - PNEUMOCYSTIS JIROVECI PNEUMONIA [None]
